FAERS Safety Report 10037619 (Version 1)
Quarter: 2014Q1

REPORT INFORMATION
  Report Type: Spontaneous
  Country: JP (occurrence: JP)
  Receive Date: 20140326
  Receipt Date: 20140326
  Transmission Date: 20141002
  Serious: Yes (Other)
  Sender: FDA-Public Use
  Company Number: JP-NOVOPROD-403909

PATIENT
  Sex: Male

DRUGS (1)
  1. GLUCAGON G NOVO [Suspect]
     Indication: ENDOSCOPY LARGE BOWEL
     Dosage: UNK
     Route: 065

REACTIONS (1)
  - Urinary retention [Unknown]
